FAERS Safety Report 12192375 (Version 2)
Quarter: 2016Q1

REPORT INFORMATION
  Report Type: Spontaneous
  Country: BR (occurrence: BR)
  Receive Date: 20160318
  Receipt Date: 20160321
  Transmission Date: 20160526
  Serious: Yes (Hospitalization)
  Sender: FDA-Public Use
  Company Number: PHHY2016BR034651

PATIENT
  Sex: Female
  Weight: 51 kg

DRUGS (1)
  1. FORASEQ [Suspect]
     Active Substance: BUDESONIDE\FORMOTEROL FUMARATE
     Indication: LUNG DISORDER
     Dosage: 4 DF, QD (2 DF OF TREATMENT 1 AND 2 DF OF TREATMENT 2)
     Route: 055

REACTIONS (4)
  - Wrong technique in product usage process [Unknown]
  - Device malfunction [Unknown]
  - Diabetes mellitus [Recovered/Resolved]
  - Product use issue [Unknown]
